FAERS Safety Report 18636616 (Version 1)
Quarter: 2020Q4

REPORT INFORMATION
  Report Type: Spontaneous
  Country: US (occurrence: US)
  Receive Date: 20201218
  Receipt Date: 20201218
  Transmission Date: 20210114
  Serious: Yes (Hospitalization, Other)
  Sender: FDA-Public Use
  Company Number: US-PURDUE-USA-2020-0179955

PATIENT
  Age: 13 Year
  Sex: Male

DRUGS (2)
  1. OXYCONTIN [Suspect]
     Active Substance: OXYCODONE HYDROCHLORIDE
     Indication: PRODUCT USED FOR UNKNOWN INDICATION
     Dosage: UNK
     Route: 048
     Dates: start: 2007
  2. BUPRENORPHINE TRANSDERMAL PATCH (SIMILAR TO NDA 21-306) [Suspect]
     Active Substance: BUPRENORPHINE
     Indication: PRODUCT USED FOR UNKNOWN INDICATION
     Dosage: UNK
     Route: 062
     Dates: start: 2007

REACTIONS (10)
  - Seizure [Unknown]
  - Fall [Unknown]
  - Foaming at mouth [Unknown]
  - Illness [Unknown]
  - Loss of consciousness [Unknown]
  - Drug dependence [Unknown]
  - Overdose [Unknown]
  - Nervousness [Unknown]
  - Psychiatric symptom [Unknown]
  - Dyspnoea [Unknown]
